FAERS Safety Report 4723308-9 (Version None)
Quarter: 2005Q3

REPORT INFORMATION
  Report Type: 
  Country: None (occurrence: None)
  Receive Date: 20050719
  Receipt Date: 20041105
  Transmission Date: 20060218
  Serious: Yes (Hospitalization)
  Sender: FDA-Public Use
  Company Number: 207414

PATIENT
  Sex: Female
  Weight: 77.1115 kg

DRUGS (7)
  1. AVONEX [Suspect]
     Indication: MULTIPLE SCLEROSIS
     Dosage: 30 UG; QW; IM
     Route: 030
     Dates: start: 20000101, end: 20030101
  2. AVONEX [Suspect]
     Indication: MULTIPLE SCLEROSIS
     Dosage: 30 UG; QW; IM
     Route: 030
     Dates: start: 20030101
  3. BACLOFEN [Concomitant]
  4. PRILOSEC [Concomitant]
  5. ZOLOFT [Concomitant]
  6. LORTAB [Concomitant]
  7. ZANAFLEX [Concomitant]

REACTIONS (7)
  - BALANCE DISORDER [None]
  - BLOOD CHOLESTEROL INCREASED [None]
  - FALL [None]
  - HUMERUS FRACTURE [None]
  - HYPERTENSION [None]
  - JOINT DISLOCATION [None]
  - MULTIPLE SCLEROSIS RELAPSE [None]
